FAERS Safety Report 8364784-2 (Version None)
Quarter: 2012Q2

REPORT INFORMATION
  Report Type: 
  Country: None (occurrence: None)
  Receive Date: 20120516
  Receipt Date: 20120510
  Transmission Date: 20120825
  Serious: Yes (Death)
  Sender: FDA-Public Use
  Company Number: JP-ROCHE-1068989

PATIENT
  Sex: Male
  Weight: 71 kg

DRUGS (3)
  1. AVASTIN [Suspect]
     Route: 041
     Dates: start: 20110817, end: 20111207
  2. AVASTIN [Suspect]
     Indication: GLIOBLASTOMA
     Route: 041
     Dates: start: 20110309, end: 20110817
  3. TEMODAL [Concomitant]
     Indication: GLIOBLASTOMA
     Route: 048
     Dates: start: 20110202

REACTIONS (4)
  - MYOCARDIAL ISCHAEMIA [None]
  - CORONARY ARTERY STENOSIS [None]
  - DROWNING [None]
  - BLOOD PRESSURE INCREASED [None]
